FAERS Safety Report 14292751 (Version 1)
Quarter: 2017Q4

REPORT INFORMATION
  Report Type: Spontaneous
  Country: US (occurrence: US)
  Receive Date: 20171215
  Receipt Date: 20171215
  Transmission Date: 20180321
  Serious: No
  Sender: FDA-Public Use
  Company Number: US-BAUSCH-BL-2016-022494

PATIENT
  Age: 77 Year
  Sex: Female

DRUGS (1)
  1. TIMOPTIC [Suspect]
     Active Substance: TIMOLOL MALEATE
     Indication: GLAUCOMA
     Route: 065

REACTIONS (5)
  - Superficial injury of eye [Recovered/Resolved]
  - Dizziness [Unknown]
  - Product container issue [Unknown]
  - Eye irritation [Recovered/Resolved]
  - Nausea [Unknown]

NARRATIVE: CASE EVENT DATE: 20080715
